FAERS Safety Report 6681798-9 (Version None)
Quarter: 2010Q2

REPORT INFORMATION
  Report Type: 
  Country: None (occurrence: None)
  Receive Date: 20100414
  Receipt Date: 20100331
  Transmission Date: 20101027
  Serious: Yes (Hospitalization)
  Sender: FDA-Public Use
  Company Number: GB-MYLANLABS-2010S1005493

PATIENT
  Age: 80 Year
  Sex: Male

DRUGS (2)
  1. LANSOPRAZOLE [Suspect]
     Indication: DRUG USE FOR UNKNOWN INDICATION
     Route: 048
     Dates: end: 20060101
  2. HELICLEAR [Suspect]
     Indication: HELICOBACTER INFECTION
     Route: 048
     Dates: end: 20060101

REACTIONS (2)
  - MOUTH ULCERATION [None]
  - PHARYNGEAL ULCERATION [None]
